FAERS Safety Report 21406205 (Version 1)
Quarter: 2022Q4

REPORT INFORMATION
  Report Type: Other
  Country: CA (occurrence: None)
  Receive Date: 20221004
  Receipt Date: 20221004
  Transmission Date: 20230113
  Serious: Yes (Other)
  Sender: FDA-Public Use
  Company Number: CA-ROCHE-3186443

PATIENT
  Age: 67 Year
  Sex: Female

DRUGS (8)
  1. ACTEMRA [Suspect]
     Active Substance: TOCILIZUMAB
     Indication: Rheumatoid arthritis
     Route: 058
     Dates: start: 20160713
  2. ASPIRIN [Concomitant]
     Active Substance: ASPIRIN
  3. CANNABIDIOL [Concomitant]
     Active Substance: CANNABIDIOL
  4. DILAUDID [Concomitant]
     Active Substance: HYDROMORPHONE HYDROCHLORIDE
  5. FUROSEMIDE [Concomitant]
     Active Substance: FUROSEMIDE
  6. HYDROMORPHONE [Concomitant]
     Active Substance: HYDROMORPHONE
  7. OZEMPIC [Concomitant]
     Active Substance: SEMAGLUTIDE
  8. PREDNISONE [Concomitant]
     Active Substance: PREDNISONE

REACTIONS (14)
  - Gastrointestinal carcinoma in situ [Unknown]
  - Hepatic cancer [Unknown]
  - Thrombocytopenia [Unknown]
  - Knee arthroplasty [Unknown]
  - Arthritis bacterial [Unknown]
  - Ill-defined disorder [Unknown]
  - Hypertransaminasaemia [Unknown]
  - Skin ulcer [Recovered/Resolved]
  - Joint noise [Unknown]
  - Fatigue [Unknown]
  - Insomnia [Unknown]
  - Ill-defined disorder [Unknown]
  - Arthropathy [Unknown]
  - Osteoarthritis [Unknown]

NARRATIVE: CASE EVENT DATE: 20220413
